FAERS Safety Report 19264487 (Version 1)
Quarter: 2021Q2

REPORT INFORMATION
  Report Type: Spontaneous
  Country: US (occurrence: US)
  Receive Date: 20210517
  Receipt Date: 20210517
  Transmission Date: 20210717
  Serious: No
  Sender: FDA-Public Use
  Company Number: None

PATIENT
  Age: 36 Year
  Sex: Female
  Weight: 47.63 kg

DRUGS (3)
  1. DROSPIRENONE 3 MG?0.03MG [Suspect]
     Active Substance: DROSPIRENONE
     Route: 048
     Dates: start: 2018
  2. OCELLA [Suspect]
     Active Substance: DROSPIRENONE\ETHINYL ESTRADIOL
  3. TYDEMY [Suspect]
     Active Substance: DROSPIRENONE\ETHINYL ESTRADIOL\LEVOMEFOLATE CALCIUM
     Route: 048
     Dates: start: 2019

REACTIONS (3)
  - Haemorrhage [None]
  - Migraine [None]
  - Mood swings [None]
